FAERS Safety Report 4341788-8 (Version None)
Quarter: 2004Q2

REPORT INFORMATION
  Report Type: 
  Country: None (occurrence: None)
  Receive Date: 20040416
  Receipt Date: 20040402
  Transmission Date: 20050107
  Serious: Yes (Hospitalization)
  Sender: FDA-Public Use
  Company Number: 2004-BP-02598BP

PATIENT
  Age: 74 Year
  Sex: Male

DRUGS (10)
  1. CATAPRES-TTS-3 [Suspect]
     Indication: HYPERTENSION
     Dosage: 0.1 MG (2.5 MG), TO
     Route: 061
     Dates: start: 20030926, end: 20030929
  2. TERAZOSIN (TERAZOSIN) [Concomitant]
  3. AMLODIPINE [Concomitant]
  4. VITAMIN E [Concomitant]
  5. ASPIRIN [Concomitant]
  6. FLUVASTATIN (FLUVASTATIN) [Concomitant]
  7. FUROSEMIDE [Concomitant]
  8. STUDY DRUG (FOREST LAB CLINICAL TRIAL) [Concomitant]
  9. DOXYCYCLINE (DOXYCYLINE) [Concomitant]
  10. LISINOPRIL [Concomitant]

REACTIONS (15)
  - ATRIAL FIBRILLATION [None]
  - BACTERIA URINE [None]
  - BLOOD PRESSURE INCREASED [None]
  - BRADYCARDIA [None]
  - CARDIAC VALVE DISEASE [None]
  - CONSTIPATION [None]
  - DILATATION ATRIAL [None]
  - DIZZINESS [None]
  - FATIGUE [None]
  - HEADACHE [None]
  - RED BLOOD CELLS URINE [None]
  - SICK SINUS SYNDROME [None]
  - TRICUSPID VALVE INCOMPETENCE [None]
  - VENTRICULAR HYPERTROPHY [None]
  - WHITE BLOOD CELLS URINE POSITIVE [None]
